FAERS Safety Report 8461017 (Version 5)
Quarter: 2014Q2

REPORT INFORMATION
  Report Type: Report from Study
  Country: CA (occurrence: CA)
  Receive Date: 20120315
  Receipt Date: 20140612
  Transmission Date: 20141212
  Serious: Yes (Other)
  Sender: FDA-Public Use
  Company Number: PHHY2012CA021085

PATIENT
  Age: 22 Year
  Sex: Male

DRUGS (10)
  1. CLOZARIL [Suspect]
     Indication: CATATONIA
     Dosage: 300 MG, UNK
     Route: 048
     Dates: start: 20030618
  2. CLOZARIL [Interacting]
     Indication: SCHIZOPHRENIA
     Dosage: UNK UKN, UNK
     Dates: start: 20110324, end: 20110413
  3. CLOZARIL [Interacting]
     Dosage: 500 MG, UNK
     Dates: start: 20120207
  4. CLOZARIL [Interacting]
     Dosage: 350 MG, UNK
  5. CLOZARIL [Interacting]
     Dosage: 300 MG, QHS
  6. CLOZARIL [Interacting]
     Dosage: 250 MG, QHS
     Route: 048
     Dates: start: 20120306
  7. CLOZARIL [Interacting]
     Dosage: UNK UKN, UNK
     Dates: start: 20140211
  8. PROZAC [Interacting]
     Dosage: 30 MG, UNK
  9. THEOPHYLLINE [Concomitant]
     Dosage: UNK UKN, UNK
  10. MULTIVITAMINS [Concomitant]
     Dosage: UNK UKN, UNK

REACTIONS (12)
  - Respiratory distress [Recovered/Resolved]
  - Myoclonus [Recovered/Resolved]
  - Sedation [Unknown]
  - Unresponsive to stimuli [Unknown]
  - Depressed level of consciousness [Unknown]
  - Lobar pneumonia [Unknown]
  - Schizophrenia [Unknown]
  - Retching [Unknown]
  - Cough [Unknown]
  - Hypotension [Unknown]
  - Antipsychotic drug level increased [Unknown]
  - Drug interaction [Unknown]
